FAERS Safety Report 4323002-2 (Version None)
Quarter: 2004Q1

REPORT INFORMATION
  Report Type: 
  Country: None (occurrence: None)
  Receive Date: 20040323
  Receipt Date: 20040323
  Transmission Date: 20041129
  Serious: No
  Sender: FDA-Public Use
  Company Number: None

PATIENT
  Sex: Female

DRUGS (1)
  1. IODINE [Suspect]
     Indication: HYPERTHYROIDISM
     Dosage: WNL

REACTIONS (1)
  - HYPOTHYROIDISM [None]
